FAERS Safety Report 18438461 (Version 2)
Quarter: 2020Q4

REPORT INFORMATION
  Report Type: Spontaneous
  Country: ES (occurrence: ES)
  Receive Date: 20201029
  Receipt Date: 20201102
  Transmission Date: 20210114
  Serious: Yes (Other)
  Sender: FDA-Public Use
  Company Number: ES-SUN PHARMACEUTICAL INDUSTRIES LTD-2020R1-265476

PATIENT
  Age: 44 Year
  Sex: Male

DRUGS (2)
  1. LATANOPROST. [Suspect]
     Active Substance: LATANOPROST
     Indication: OCULAR HYPERTENSION
     Dosage: UNK(IN BOTH EYE)
     Route: 061
  2. LATANOPROST. [Suspect]
     Active Substance: LATANOPROST
     Dosage: UNK, QD(IN LEFT EYE)
     Route: 065

REACTIONS (1)
  - Corneal disorder [Recovered/Resolved]
